FAERS Safety Report 9537730 (Version 1)
Quarter: 2013Q3

REPORT INFORMATION
  Report Type: Report from Study
  Country: DE (occurrence: DE)
  Receive Date: 20130919
  Receipt Date: 20130919
  Transmission Date: 20140515
  Serious: Yes (Life-Threatening, Hospitalization)
  Sender: FDA-Public Use
  Company Number: DE-ROCHE-1276598

PATIENT
  Age: 50 Year
  Sex: Female
  Weight: 65 kg

DRUGS (12)
  1. BEVACIZUMAB [Suspect]
     Indication: RECTAL CANCER
     Route: 042
     Dates: start: 20080630
  2. ASS [Concomitant]
     Indication: MYOCARDIAL INFARCTION
     Route: 048
  3. PANTOPRAZOL [Concomitant]
     Indication: PROPHYLAXIS AGAINST GASTROINTESTINAL ULCER
     Route: 048
  4. AMLODIPIN [Concomitant]
     Indication: HYPERTENSION
     Route: 048
  5. VALSARTAN [Concomitant]
     Indication: HYPERTENSION
     Route: 048
  6. SIMVASTATIN [Concomitant]
     Route: 048
  7. CAPECITABINE [Concomitant]
     Indication: RECTAL CANCER
     Route: 065
  8. PANITUMUMAB [Concomitant]
     Indication: RECTAL CANCER
  9. FOLINIC ACID [Concomitant]
     Indication: RECTAL CANCER
  10. IRINOTECAN [Concomitant]
     Indication: RECTAL CANCER
  11. FLUOROURACIL [Concomitant]
     Indication: RECTAL CANCER
  12. OXALIPLATIN [Concomitant]
     Indication: RECTAL CANCER

REACTIONS (11)
  - Myocardial infarction [Recovered/Resolved]
  - Chest pain [Recovered/Resolved]
  - Angina pectoris [Recovered/Resolved]
  - Hyperthyroidism [Recovered/Resolved]
  - Local swelling [Unknown]
  - Diarrhoea [Recovered/Resolved]
  - Urinary tract infection [Recovered/Resolved]
  - Acne [Unknown]
  - Dry skin [Unknown]
  - Inflammation [Unknown]
  - Nausea [Recovered/Resolved]
